FAERS Safety Report 23551476 (Version 3)
Quarter: 2024Q4

REPORT INFORMATION
  Report Type: Spontaneous
  Country: US (occurrence: US)
  Receive Date: 20240222
  Receipt Date: 20241018
  Transmission Date: 20250114
  Serious: No
  Sender: ROCHE
  Company Number: US-ROCHE-3512192

PATIENT
  Sex: Female

DRUGS (3)
  1. XOLAIR [Suspect]
     Active Substance: OMALIZUMAB
     Indication: Onycholysis
     Dosage: STRENGTH: 150MG/ML
     Route: 058
  2. XOLAIR [Suspect]
     Active Substance: OMALIZUMAB
  3. EPINEPHRINE [Concomitant]
     Active Substance: EPINEPHRINE

REACTIONS (2)
  - Off label use [Unknown]
  - No adverse event [Unknown]
